FAERS Safety Report 7186899-7 (Version None)
Quarter: 2010Q4

REPORT INFORMATION
  Report Type: 
  Country: None (occurrence: None)
  Receive Date: 20101222
  Receipt Date: 20100628
  Transmission Date: 20110411
  Serious: No
  Sender: FDA-Public Use
  Company Number: US-AMGEN-TCS420938

PATIENT

DRUGS (1)
  1. ENBREL [Suspect]
     Indication: ANKYLOSING SPONDYLITIS
     Dosage: 50 MG, QWK
     Route: 058
     Dates: start: 20100521, end: 20100616

REACTIONS (6)
  - CHILLS [None]
  - FATIGUE [None]
  - KIDNEY INFECTION [None]
  - OEDEMA PERIPHERAL [None]
  - PAIN [None]
  - SWELLING FACE [None]
